FAERS Safety Report 7598317-5 (Version None)
Quarter: 2011Q3

REPORT INFORMATION
  Report Type: 
  Country: None (occurrence: None)
  Receive Date: 20110708
  Receipt Date: 20110623
  Transmission Date: 20111222
  Serious: Yes (Other)
  Sender: FDA-Public Use
  Company Number: TR-WATSON-2011-10142

PATIENT
  Age: 10 Year
  Sex: Male

DRUGS (5)
  1. PREDNISONE [Suspect]
     Indication: PROPHYLAXIS AGAINST TRANSPLANT REJECTION
     Dosage: 5 MG, DAILY
     Route: 065
  2. CYCLOSPORINE [Suspect]
     Indication: PROPHYLAXIS AGAINST TRANSPLANT REJECTION
     Dosage: 2 MG/KG/DAY
     Route: 065
  3. VALACYCLOVIR HYDROCHLORIDE [Suspect]
     Indication: ANTIVIRAL PROPHYLAXIS
     Route: 065
  4. MYCOPHENOLATE MEFETIL [Suspect]
     Indication: PROPHYLAXIS AGAINST TRANSPLANT REJECTION
     Dosage: 360MG/M2/D
     Route: 065
  5. TACROLIMUS [Suspect]
     Indication: PROPHYLAXIS AGAINST TRANSPLANT REJECTION
     Dosage: 0.15MG/KG/D
     Route: 065

REACTIONS (14)
  - EPSTEIN-BARR VIRUS ASSOCIATED LYMPHOPROLIFERATIVE DISORDER [None]
  - PYREXIA [None]
  - MONOCYTOSIS [None]
  - WEIGHT DECREASED [None]
  - SPLENIC LESION [None]
  - EPSTEIN-BARR VIRUS INFECTION [None]
  - DECREASED APPETITE [None]
  - HEPATIC NEOPLASM [None]
  - DIFFUSE LARGE B-CELL LYMPHOMA [None]
  - DRUG INEFFECTIVE [None]
  - KIDNEY TRANSPLANT REJECTION [None]
  - OROPHARYNGEAL PAIN [None]
  - HEPATOSPLENOMEGALY [None]
  - HEPATIC LESION [None]
